FAERS Safety Report 7797209-6 (Version None)
Quarter: 2011Q4

REPORT INFORMATION
  Report Type: 
  Country: None (occurrence: None)
  Receive Date: 20111005
  Receipt Date: 20110923
  Transmission Date: 20120403
  Serious: Yes (Other)
  Sender: FDA-Public Use
  Company Number: PHHY2011BR85381

PATIENT
  Sex: Female
  Weight: 63 kg

DRUGS (8)
  1. PROPAFENONE HYDROCHLORIDE [Concomitant]
     Dosage: 300 MG, UNK
  2. EXFORGE [Suspect]
     Indication: HYPERTENSION
     Dosage: 1 DF (160/5 MG), DAILY IN THE MORNING
     Route: 048
  3. DONEPEZIL HYDROCHLORIDE [Concomitant]
     Dosage: 5 MG, UNK
  4. DIOVAN HCT [Suspect]
     Indication: HYPERTENSION
     Dosage: 1 DF (160/12.5 MG), DAILY AT THE NIGHT
  5. CLONAZEPAM [Concomitant]
     Dosage: 0.5 MG, UNK
  6. ULTRACET [Concomitant]
     Dosage: 10 MG, UNK
  7. FOSAMAX [Concomitant]
     Dosage: 70 MG, UNK
  8. PREDNISONE [Concomitant]
     Dosage: 20 MG, UNK

REACTIONS (5)
  - BONE PAIN [None]
  - DEMENTIA ALZHEIMER'S TYPE [None]
  - OSTEOPOROSIS [None]
  - CONDITION AGGRAVATED [None]
  - FALL [None]
